FAERS Safety Report 10129928 (Version 1)
Quarter: 2014Q2

REPORT INFORMATION
  Report Type: Spontaneous
  Country: FR (occurrence: None)
  Receive Date: 20140424
  Receipt Date: 20140424
  Transmission Date: 20141212
  Serious: Yes (Life-Threatening, Hospitalization)
  Sender: FDA-Public Use
  Company Number: HRA-MET20140003

PATIENT
  Age: 77 Year
  Sex: Female

DRUGS (2)
  1. METOPIRONE [Suspect]
     Indication: ECTOPIC ACTH SYNDROME
     Dosage: (750 MG,  4 IN 1D)
     Dates: start: 20131218, end: 20131221
  2. BACTRIM (SULFAMETHOXAZOLE) [Concomitant]

REACTIONS (10)
  - Pneumocystis jirovecii pneumonia [None]
  - Confusional state [None]
  - Lung disorder [None]
  - Pyrexia [None]
  - Hypoglycaemia [None]
  - Blood cortisol increased [None]
  - Somnolence [None]
  - Hypotension [None]
  - Oxygen saturation decreased [None]
  - Septic shock [None]
